FAERS Safety Report 15235853 (Version 1)
Quarter: 2018Q3

REPORT INFORMATION
  Report Type: Spontaneous
  Country: US (occurrence: US)
  Receive Date: 20180803
  Receipt Date: 20180803
  Transmission Date: 20181010
  Serious: No
  Sender: FDA-Public Use
  Company Number: US-JNJFOC-20180637992

PATIENT
  Age: 73 Year
  Sex: Male
  Weight: 90.72 kg

DRUGS (2)
  1. IMODIUM A?D [Suspect]
     Active Substance: LOPERAMIDE HYDROCHLORIDE
     Route: 048
  2. IMODIUM A?D [Suspect]
     Active Substance: LOPERAMIDE HYDROCHLORIDE
     Indication: ANTIDIARRHOEAL SUPPORTIVE CARE
     Dosage: STARTED USE ABOUT 4 MONTHS AGO AND TOOK IT FOR 2 WEEKS
     Route: 048

REACTIONS (2)
  - Drug ineffective [Unknown]
  - Constipation [Not Recovered/Not Resolved]
